FAERS Safety Report 4954268-3 (Version None)
Quarter: 2006Q1

REPORT INFORMATION
  Report Type: 
  Country: None (occurrence: None)
  Receive Date: 20060327
  Receipt Date: 20050315
  Transmission Date: 20060701
  Serious: Yes (Hospitalization)
  Sender: FDA-Public Use
  Company Number: US-MERCK-0503USA03130

PATIENT
  Age: 79 Year
  Sex: Male
  Weight: 73 kg

DRUGS (5)
  1. VIOXX [Suspect]
     Indication: MONARTHRITIS
     Route: 048
     Dates: start: 20010208, end: 20010930
  2. AMBIEN [Concomitant]
     Route: 065
  3. AMOXIL [Concomitant]
     Route: 065
  4. PREVACID [Concomitant]
     Route: 065
  5. ASPIRIN [Concomitant]
     Route: 065

REACTIONS (5)
  - CHEST PAIN [None]
  - HIP FRACTURE [None]
  - HYPOTENSION [None]
  - INTESTINAL HAEMORRHAGE [None]
  - PALPITATIONS [None]
